FAERS Safety Report 6715297-2 (Version None)
Quarter: 2010Q2

REPORT INFORMATION
  Report Type: 
  Country: None (occurrence: None)
  Receive Date: 20100507
  Receipt Date: 20100429
  Transmission Date: 20101027
  Serious: Yes (Other)
  Sender: FDA-Public Use
  Company Number: US-PFIZER INC-2010055008

PATIENT
  Sex: Female
  Weight: 60.317 kg

DRUGS (2)
  1. GEODON [Suspect]
     Indication: MENTAL DISORDER
     Dosage: 80 MG, 2X/DAY
     Route: 048
     Dates: start: 20091101
  2. ZOLOFT [Concomitant]
     Dosage: UNK

REACTIONS (3)
  - MUSCLE SPASMS [None]
  - OVERDOSE [None]
  - TREMOR [None]
